FAERS Safety Report 17213011 (Version 2)
Quarter: 2020Q1

REPORT INFORMATION
  Report Type: Spontaneous
  Country: NL (occurrence: NL)
  Receive Date: 20191230
  Receipt Date: 20200102
  Transmission Date: 20200409
  Serious: Yes (Other)
  Sender: FDA-Public Use
  Company Number: NL-MYLANLABS-2019M1131794

PATIENT
  Age: 57 Year
  Sex: Female
  Weight: 68 kg

DRUGS (1)
  1. DOXYCYCLINE. [Suspect]
     Active Substance: DOXYCYCLINE
     Indication: ARTHROPOD BITE
     Dosage: 1 PER DAG 1 STUK
     Route: 048
     Dates: start: 20190604, end: 20190614

REACTIONS (6)
  - Vitreous detachment [Recovered/Resolved with Sequelae]
  - Dry mouth [Unknown]
  - Dry eye [Unknown]
  - Nasal dryness [Unknown]
  - Paraesthesia oral [Recovered/Resolved with Sequelae]
  - Headache [Recovered/Resolved with Sequelae]

NARRATIVE: CASE EVENT DATE: 20190616
